FAERS Safety Report 10028517 (Version 2)
Quarter: 2014Q1

REPORT INFORMATION
  Report Type: Spontaneous
  Country: BR (occurrence: BR)
  Receive Date: 20140321
  Receipt Date: 20140328
  Transmission Date: 20141002
  Serious: Yes (Other)
  Sender: FDA-Public Use
  Company Number: BR-ABBVIE-14P-020-1214942-00

PATIENT
  Sex: Male

DRUGS (1)
  1. VALPROATE SODIUM [Suspect]
     Indication: EPILEPSY
     Route: 065
     Dates: start: 20130531

REACTIONS (4)
  - Adverse event [Recovering/Resolving]
  - Abnormal behaviour [Recovering/Resolving]
  - Therapeutic response decreased [Unknown]
  - Poor quality drug administered [Unknown]
